FAERS Safety Report 13782920 (Version 5)
Quarter: 2018Q1

REPORT INFORMATION
  Report Type: Report from Study
  Country: TW (occurrence: TW)
  Receive Date: 20170724
  Receipt Date: 20180131
  Transmission Date: 20180508
  Serious: Yes (Death, Hospitalization)
  Sender: FDA-Public Use
  Company Number: TW-ROCHE-1956007

PATIENT
  Age: 58 Year
  Sex: Male
  Weight: 85.6 kg

DRUGS (39)
  1. GEMCITABINE [Suspect]
     Active Substance: GEMCITABINE\GEMCITABINE HYDROCHLORIDE
     Indication: URETERIC CANCER
     Dosage: MOST RECENT DOSE 1400 MG/M2 OF GEMCITABINE PRIOR TO AE ONSET 19/JUN/2017?DOSE AS PER PROTOCOL
     Route: 042
     Dates: start: 20161213
  2. CHLORPROMAZINE. [Concomitant]
     Active Substance: CHLORPROMAZINE
     Indication: HICCUPS
     Route: 048
     Dates: start: 20161213, end: 20170620
  3. PROCHLORPERAZINE. [Concomitant]
     Active Substance: PROCHLORPERAZINE
     Indication: PROPHYLAXIS
     Route: 048
     Dates: start: 20161213, end: 20161217
  4. METOCLOPRAMIDE. [Concomitant]
     Active Substance: METOCLOPRAMIDE
     Indication: PROPHYLAXIS
     Dosage: 3.84 MG BASE/TAB
     Route: 048
     Dates: start: 20170103, end: 20170122
  5. THEOPHYLLINE SR [Concomitant]
     Active Substance: THEOPHYLLINE ANHYDROUS
     Indication: CREPITATIONS
     Route: 048
     Dates: start: 20170103, end: 20170710
  6. CEFADROXIL MONOHYDRATE [Concomitant]
     Active Substance: CEFADROXIL
     Indication: INFECTION
     Route: 048
     Dates: start: 20161205, end: 20161207
  7. MONTELUKAST SODIUM. [Concomitant]
     Active Substance: MONTELUKAST SODIUM
     Indication: RHINORRHOEA
     Route: 048
     Dates: start: 20170413, end: 20170601
  8. ATEZOLIZUMAB. [Suspect]
     Active Substance: ATEZOLIZUMAB
     Indication: URETERIC CANCER
     Dosage: MOST RECENT DOSE OF BLINDED ATEZOLIZUMAB TO AE ONSET 12/JUN/2017 (1200 MG)
     Route: 042
     Dates: start: 20161213
  9. FLUITRAN [Concomitant]
     Active Substance: TRICHLORMETHIAZIDE
     Indication: HYPERLIPIDAEMIA
     Route: 048
     Dates: end: 20170626
  10. DEXTROMETHORPHAN [Concomitant]
     Active Substance: DEXTROMETHORPHAN
     Indication: COUGH
     Route: 048
     Dates: start: 20170103, end: 20170122
  11. FAMOTIDINE. [Concomitant]
     Active Substance: FAMOTIDINE
     Indication: PROPHYLAXIS
     Route: 048
     Dates: start: 20170109, end: 20170122
  12. SILYMARIN [Concomitant]
     Active Substance: DIETARY SUPPLEMENT\HERBALS\MILK THISTLE
     Indication: ALANINE AMINOTRANSFERASE INCREASED
     Route: 048
     Dates: start: 20170327, end: 20170713
  13. CONSLIFE [Concomitant]
     Indication: CONSTIPATION
     Route: 048
     Dates: start: 20170628, end: 20170713
  14. CONSLIFE [Concomitant]
     Route: 048
     Dates: start: 20170424, end: 20170612
  15. SPIRONOLACTONE. [Concomitant]
     Active Substance: SPIRONOLACTONE
     Indication: ASCITES
     Route: 048
     Dates: start: 20170701, end: 20170713
  16. SENNOSIDE A+B [Concomitant]
     Active Substance: SENNOSIDES A AND B
     Indication: CONSTIPATION
     Dosage: + CALCIUM
     Route: 048
     Dates: start: 20161213, end: 20170423
  17. ACETAMINOPHEN. [Concomitant]
     Active Substance: ACETAMINOPHEN
     Route: 048
     Dates: start: 20170628, end: 20170701
  18. FEXOFENADINE [Concomitant]
     Active Substance: FEXOFENADINE\FEXOFENADINE HYDROCHLORIDE
     Indication: RHINORRHOEA
     Route: 048
     Dates: start: 20170302, end: 20170702
  19. CODEINE PHOSPHATE [Concomitant]
     Active Substance: CODEINE PHOSPHATE
     Indication: COUGH
     Dosage: 15 MG/ML/AMP
     Route: 042
     Dates: start: 20170714, end: 20170715
  20. METHYLPREDNISOLONE. [Concomitant]
     Active Substance: METHYLPREDNISOLONE
     Dosage: 500 MG/VIAL
     Route: 042
     Dates: start: 20170712, end: 20170715
  21. GLUCOSE [Concomitant]
     Active Substance: DEXTROSE
     Dosage: 20 ML/AMP DOSE 4 AMPULE
     Route: 042
     Dates: start: 20170628, end: 20170628
  22. JANUVIA [Concomitant]
     Active Substance: SITAGLIPTIN PHOSPHATE
     Indication: TYPE 2 DIABETES MELLITUS
     Route: 048
     Dates: end: 20170628
  23. METOCLOPRAMIDE. [Concomitant]
     Active Substance: METOCLOPRAMIDE
     Indication: VOMITING
  24. LINAGLIPTIN [Concomitant]
     Active Substance: LINAGLIPTIN
     Indication: DIABETES MELLITUS
     Route: 048
     Dates: start: 20170628, end: 20170705
  25. METHYLPREDNISOLONE. [Concomitant]
     Active Substance: METHYLPREDNISOLONE
     Indication: HEPATIC FAILURE
     Dosage: 40 MG/VIAL
     Route: 042
     Dates: start: 20170703, end: 20170715
  26. CARBOPLATIN. [Suspect]
     Active Substance: CARBOPLATIN
     Indication: URETERIC CANCER
     Dosage: DOSES TO ACHIEVE AREA UNDER THE CONCENTRATION-TIME CURVE (AUC) OF 4.5 MILLIGRAM PER MILLILITER INTO
     Route: 042
     Dates: start: 20161213
  27. SILYMARIN [Concomitant]
     Active Substance: DIETARY SUPPLEMENT\HERBALS\MILK THISTLE
     Indication: ASPARTATE AMINOTRANSFERASE INCREASED
  28. DOMPERIDONE [Concomitant]
     Active Substance: DOMPERIDONE
     Indication: FLATULENCE
     Route: 048
     Dates: start: 20170612, end: 20170702
  29. SUCRALFATE SUSPENSION [Concomitant]
     Active Substance: SUCRALFATE
     Indication: GASTRITIS HAEMORRHAGIC
     Route: 048
     Dates: start: 20170701, end: 20170701
  30. ACETAMINOPHEN. [Concomitant]
     Active Substance: ACETAMINOPHEN
     Indication: PYREXIA
     Route: 048
     Dates: start: 20170103, end: 20170122
  31. PANTOPRAZOLE [Concomitant]
     Active Substance: PANTOPRAZOLE
     Indication: GASTRITIS HAEMORRHAGIC
     Route: 042
     Dates: start: 20170628, end: 20170701
  32. CRESTOR [Concomitant]
     Active Substance: ROSUVASTATIN CALCIUM
     Indication: HYPERLIPIDAEMIA
     Route: 048
     Dates: end: 20170628
  33. EXFORGE [Concomitant]
     Active Substance: AMLODIPINE BESYLATE\VALSARTAN
     Indication: HYPERTENSION
     Dosage: 5/80MG
     Route: 048
     Dates: end: 20170713
  34. NOVOMIX 30 FLEXPEN [Concomitant]
     Active Substance: INSULIN ASPART
     Indication: TYPE 2 DIABETES MELLITUS
     Dosage: 30 UNITS
     Route: 058
     Dates: end: 20170628
  35. CODEINE PHOSPHATE [Concomitant]
     Active Substance: CODEINE PHOSPHATE
     Route: 048
     Dates: start: 20170406, end: 20170417
  36. RABEPRAZOLE [Concomitant]
     Active Substance: RABEPRAZOLE
     Indication: GASTRITIS HAEMORRHAGIC
     Route: 048
     Dates: start: 20170629, end: 20170711
  37. CONCOR [Concomitant]
     Active Substance: BISOPROLOL FUMARATE
     Indication: HYPERTENSION
     Route: 048
     Dates: end: 20170713
  38. METOCLOPRAMIDE. [Concomitant]
     Active Substance: METOCLOPRAMIDE
     Indication: NAUSEA
     Dosage: 7.68 MG BASE/2ML/AMP
     Route: 042
     Dates: start: 20170707, end: 20170714
  39. SPIRONOLACTONE. [Concomitant]
     Active Substance: SPIRONOLACTONE
     Indication: OEDEMA

REACTIONS (7)
  - Hepatic failure [Fatal]
  - Blood bilirubin increased [Not Recovered/Not Resolved]
  - Sepsis [Not Recovered/Not Resolved]
  - Blood creatinine increased [Recovered/Resolved]
  - White blood cell count decreased [Recovered/Resolved]
  - Platelet count decreased [Recovered/Resolved]
  - Anaemia [Recovered/Resolved]

NARRATIVE: CASE EVENT DATE: 20161227
